FAERS Safety Report 4589578-5 (Version None)
Quarter: 2005Q1

REPORT INFORMATION
  Report Type: 
  Country: None (occurrence: None)
  Receive Date: 20050217
  Receipt Date: 20050207
  Transmission Date: 20050727
  Serious: Yes (Death)
  Sender: FDA-Public Use
  Company Number: MEDI-0002743

PATIENT
  Age: 4 Month
  Sex: Female

DRUGS (8)
  1. SYNAGIS [Suspect]
     Indication: ANTIVIRAL PROPHYLAXIS
     Dosage: 105 MG, 1 IN 30 D, INTRAVENOUS
     Route: 042
     Dates: start: 20050110, end: 20050110
  2. HYDROCORTISONE [Concomitant]
  3. RANITIDINE [Concomitant]
  4. AMBISOME [Concomitant]
  5. TAZOCIN (PIPERACILLIN SODIUM, TAZOBACTAM SODIUM) [Concomitant]
  6. METRONIDAZOLE [Concomitant]
  7. MEROPENEM (MEROPENEM) [Concomitant]
  8. GRANULOCYTE COLONY STIMULATING FACTOR (GRANULOCYTE COLONY STIMULATING [Concomitant]

REACTIONS (4)
  - FEBRILE NEUTROPENIA [None]
  - MULTI-ORGAN FAILURE [None]
  - RESPIRATORY FAILURE [None]
  - SEPSIS [None]
